FAERS Safety Report 7828095-3 (Version None)
Quarter: 2011Q4

REPORT INFORMATION
  Report Type: 
  Country: None (occurrence: None)
  Receive Date: 20111018
  Receipt Date: 20111004
  Transmission Date: 20120403
  Serious: Yes (Other)
  Sender: FDA-Public Use
  Company Number: JP-2011-11409

PATIENT
  Age: 57 Year
  Sex: Female
  Weight: 57 kg

DRUGS (6)
  1. PLETAL [Suspect]
     Indication: CEREBRAL ARTERY STENOSIS
     Dosage: 100 MG MILLIGRAM(S), DAILY DOSE, ORAL; 100MG MILLIGRAM(S), BID, ORAL
     Route: 048
     Dates: start: 20110428, end: 20110630
  2. PLETAL [Suspect]
     Indication: CEREBRAL ARTERY STENOSIS
     Dosage: 100 MG MILLIGRAM(S), DAILY DOSE, ORAL; 100MG MILLIGRAM(S), BID, ORAL
     Route: 048
     Dates: start: 20110701
  3. CRESTOR [Concomitant]
  4. PREMINENT (HYDROCHOROTHIAZIDE, LOSARTAN POTASSIUM) [Concomitant]
  5. BAYASPIRN (ACETYLSALICYLIC ACID) [Concomitant]
  6. LANSOPRAZOLE [Concomitant]

REACTIONS (5)
  - MUSCULOSKELETAL STIFFNESS [None]
  - FATIGUE [None]
  - CONDITION AGGRAVATED [None]
  - ALOPECIA [None]
  - HEADACHE [None]
